FAERS Safety Report 5202875-5 (Version None)
Quarter: 2006Q4

REPORT INFORMATION
  Report Type: 
  Country: None (occurrence: None)
  Receive Date: 20061016
  Receipt Date: 20060801
  Transmission Date: 20070319
  Serious: No
  Sender: FDA-Public Use
  Company Number: 2006SP002896

PATIENT
  Sex: Female
  Weight: 68.0396 kg

DRUGS (4)
  1. LUNESTA [Suspect]
     Indication: INSOMNIA
     Dosage: 2 MG, HS, ORAL, 4 MG, HS, ORAL, 3 MG, HS, ORAL, 6 MG, HS; ORAL
     Route: 048
     Dates: start: 20060101, end: 20060101
  2. LUNESTA [Suspect]
     Indication: INSOMNIA
     Dosage: 2 MG, HS, ORAL, 4 MG, HS, ORAL, 3 MG, HS, ORAL, 6 MG, HS; ORAL
     Route: 048
     Dates: start: 20060101, end: 20060101
  3. LUNESTA [Suspect]
     Indication: INSOMNIA
     Dosage: 2 MG, HS, ORAL, 4 MG, HS, ORAL, 3 MG, HS, ORAL, 6 MG, HS; ORAL
     Route: 048
     Dates: start: 20060101, end: 20060101
  4. LUNESTA [Suspect]
     Indication: INSOMNIA
     Dosage: 2 MG, HS, ORAL, 4 MG, HS, ORAL, 3 MG, HS, ORAL, 6 MG, HS; ORAL
     Route: 048
     Dates: start: 20060101, end: 20060101

REACTIONS (1)
  - DRUG TOLERANCE [None]
